FAERS Safety Report 24353985 (Version 1)
Quarter: 2024Q3

REPORT INFORMATION
  Report Type: Spontaneous
  Country: US (occurrence: US)
  Receive Date: 20240923
  Receipt Date: 20240923
  Transmission Date: 20241016
  Serious: Yes (Other)
  Sender: SANDOZ
  Company Number: US-SANDOZ-SDZ2024US081400

PATIENT
  Age: 22 Year
  Sex: Male

DRUGS (4)
  1. TESTOSTERONE CYPIONATE [Suspect]
     Active Substance: TESTOSTERONE CYPIONATE
     Indication: Transgender hormonal therapy
     Dosage: UNK, QW
     Route: 030
  2. TESTOSTERONE CYPIONATE [Suspect]
     Active Substance: TESTOSTERONE CYPIONATE
     Dosage: UNK
     Route: 062
  3. NORETHINDRONE [Concomitant]
     Active Substance: NORETHINDRONE
     Indication: Uterine haemorrhage
     Dosage: UNK
     Route: 065
  4. PROGESTERONE [Concomitant]
     Active Substance: PROGESTERONE
     Indication: Uterine haemorrhage
     Dosage: UNK
     Route: 048

REACTIONS (2)
  - Hepatic adenoma [Recovering/Resolving]
  - Haemorrhagic tumour necrosis [Recovering/Resolving]
